FAERS Safety Report 4356687-5 (Version None)
Quarter: 2004Q2

REPORT INFORMATION
  Report Type: 
  Country: None (occurrence: None)
  Receive Date: 20040507
  Receipt Date: 20040427
  Transmission Date: 20050107
  Serious: Yes (Other)
  Sender: FDA-Public Use
  Company Number: US_0404102309

PATIENT
  Age: 33 Year
  Sex: Male
  Weight: 82 kg

DRUGS (3)
  1. CEPHALEXIN [Suspect]
     Dosage: 500 MG/3 DAY
     Dates: start: 20031203, end: 20031206
  2. LAMICTAL [Concomitant]
  3. DEPAKOTE [Concomitant]

REACTIONS (2)
  - CONVULSION [None]
  - DRUG INTERACTION [None]
